FAERS Safety Report 25247374 (Version 1)
Quarter: 2025Q2

REPORT INFORMATION
  Report Type: Report from Study
  Country: US (occurrence: US)
  Receive Date: 20250428
  Receipt Date: 20250428
  Transmission Date: 20250717
  Serious: Yes (Hospitalization)
  Sender: PFIZER
  Company Number: US-PFIZER INC-202500087748

PATIENT
  Age: 58 Year
  Sex: Male

DRUGS (7)
  1. LORBRENA [Suspect]
     Active Substance: LORLATINIB
     Dosage: 100 MG, DAILY
     Route: 048
     Dates: start: 20250319
  2. LOPERAMIDE HYDROCHLORIDE [Concomitant]
     Active Substance: LOPERAMIDE HYDROCHLORIDE
  3. VOLTAREN ARTHRITIS PAIN [Concomitant]
     Active Substance: DICLOFENAC SODIUM
     Indication: Arthritis
  4. FOLIC ACID [Concomitant]
     Active Substance: FOLIC ACID
  5. MELATONIN [Concomitant]
     Active Substance: MELATONIN
  6. XGEVA [Concomitant]
     Active Substance: DENOSUMAB
  7. ACETAMINOPHEN\HYDROCODONE [Concomitant]
     Active Substance: ACETAMINOPHEN\HYDROCODONE

REACTIONS (6)
  - Hallucination [Recovering/Resolving]
  - Myalgia [Not Recovered/Not Resolved]
  - Condition aggravated [Unknown]
  - Bone pain [Not Recovered/Not Resolved]
  - Condition aggravated [Unknown]
  - Diarrhoea [Recovering/Resolving]

NARRATIVE: CASE EVENT DATE: 20250101
